FAERS Safety Report 9731845 (Version 1)
Quarter: 2013Q4

REPORT INFORMATION
  Report Type: Spontaneous
  Country: ES (occurrence: ES)
  Receive Date: 20131204
  Receipt Date: 20131204
  Transmission Date: 20140711
  Serious: No
  Sender: FDA-Public Use
  Company Number: ES-JNJFOC-20131115792

PATIENT
  Age: 65 Year
  Sex: Male

DRUGS (2)
  1. DUROGESIC [Suspect]
     Indication: PAIN MANAGEMENT
     Route: 062
     Dates: start: 201311
  2. DUROGESIC [Suspect]
     Indication: PAIN MANAGEMENT
     Route: 062
     Dates: start: 201311

REACTIONS (5)
  - Wrong technique in drug usage process [Unknown]
  - Somnolence [Recovered/Resolved]
  - Nausea [Recovered/Resolved]
  - Product adhesion issue [Not Recovered/Not Resolved]
  - Inadequate analgesia [Not Recovered/Not Resolved]
